FAERS Safety Report 13743671 (Version 1)
Quarter: 2017Q3

REPORT INFORMATION
  Report Type: Spontaneous
  Country: US (occurrence: US)
  Receive Date: 20170711
  Receipt Date: 20170711
  Transmission Date: 20171127
  Serious: Yes (Hospitalization, Other)
  Sender: FDA-Public Use
  Company Number: US-ALKERMES INC.-ALK-2017-002710

PATIENT
  Age: 28 Year
  Sex: Female

DRUGS (1)
  1. VIVITROL [Suspect]
     Active Substance: NALTREXONE
     Indication: ALCOHOLISM
     Dosage: 380 MG, QMO
     Route: 030
     Dates: start: 201610

REACTIONS (6)
  - Injection site reaction [Recovered/Resolved]
  - Injection site erythema [Recovered/Resolved]
  - Injection site infection [Recovered/Resolved]
  - Injection site mass [Recovered/Resolved]
  - Injection site warmth [Recovered/Resolved]
  - Injection site induration [Recovered/Resolved]

NARRATIVE: CASE EVENT DATE: 201610
